FAERS Safety Report 7328428-0 (Version None)
Quarter: 2011Q1

REPORT INFORMATION
  Report Type: 
  Country: None (occurrence: None)
  Receive Date: 20110223
  Receipt Date: 20110209
  Transmission Date: 20110831
  Serious: Yes (Death)
  Sender: FDA-Public Use
  Company Number: UTC-005172

PATIENT
  Sex: Male

DRUGS (3)
  1. TRACLEER [Concomitant]
  2. REVATIO [Concomitant]
  3. REMODULIN [Suspect]
     Indication: PULMONARY ARTERIAL HYPERTENSION
     Dosage: 76.32 UG/KG (0.053 UG/KG 1 IN 1 MIN), INTRAVENOUS
     Route: 042
     Dates: start: 20101111, end: 20110203

REACTIONS (1)
  - DEATH [None]
